FAERS Safety Report 5537418-X (Version None)
Quarter: 2007Q4

REPORT INFORMATION
  Report Type: 
  Country: None (occurrence: None)
  Receive Date: 20071207
  Receipt Date: 20071128
  Transmission Date: 20080405
  Serious: Yes (Hospitalization)
  Sender: FDA-Public Use
  Company Number: B0498502A

PATIENT
  Age: 71 Year
  Sex: Male

DRUGS (3)
  1. ARIXTRA [Suspect]
     Indication: PROPHYLAXIS
     Dosage: 2.5MG PER DAY
     Route: 058
     Dates: start: 20061206, end: 20061209
  2. LASIX [Concomitant]
     Route: 042
     Dates: start: 20061115, end: 20061219
  3. CALCIPARINE [Concomitant]

REACTIONS (4)
  - DEEP VEIN THROMBOSIS [None]
  - HAEMOGLOBIN DECREASED [None]
  - OVERDOSE [None]
  - PERITONEAL HAEMORRHAGE [None]
